FAERS Safety Report 6470029-0 (Version None)
Quarter: 2009Q4

REPORT INFORMATION
  Report Type: 
  Country: None (occurrence: None)
  Receive Date: 20091203
  Receipt Date: 20081204
  Transmission Date: 20100525
  Serious: Yes (Death, Life-Threatening, Hospitalization)
  Sender: FDA-Public Use
  Company Number: FR-ELI_LILLY_AND_COMPANY-FR200711002507

PATIENT
  Age: 74 Year
  Sex: Female

DRUGS (2)
  1. GEMZAR [Suspect]
     Indication: METASTATIC CARCINOMA OF THE BLADDER
     Dosage: 1250 MG/M2, DAILY (1/D)
     Dates: start: 20060101
  2. CARBOPLATIN                             /SCH/ [Concomitant]
     Indication: METASTATIC CARCINOMA OF THE BLADDER
     Dosage: RECEIVED ON DAY TWO

REACTIONS (5)
  - ANAEMIA [None]
  - DRUG TOXICITY [None]
  - NEUTROPENIA [None]
  - NEUTROPENIC SEPSIS [None]
  - THROMBOCYTOPENIA [None]
